FAERS Safety Report 8405998-2 (Version None)
Quarter: 2012Q2

REPORT INFORMATION
  Report Type: 
  Country: None (occurrence: None)
  Receive Date: 20120323
  Receipt Date: 20110524
  Transmission Date: 20120825
  Serious: Yes (Hospitalization, Other)
  Sender: FDA-Public Use
  Company Number: 163-21880-10072598

PATIENT
  Age: 89 Year
  Sex: Male

DRUGS (20)
  1. DEXAMETHASONE [Concomitant]
  2. HEPARIN [Concomitant]
  3. TALACEN (FORTAGESIC) [Concomitant]
  4. RITALIN [Concomitant]
  5. CALCIUM + D (OS-CAL) [Concomitant]
  6. NITROGLYCERIN [Concomitant]
  7. CELEBREX [Concomitant]
  8. MULTIVITAMIN [Concomitant]
  9. FAMOTIDINE [Concomitant]
  10. METOPROLOL TARTRATE [Concomitant]
  11. MEGACE [Concomitant]
  12. ASPIRIN [Concomitant]
  13. PROSCAR [Concomitant]
  14. COUMADIN [Concomitant]
  15. REVLIMID [Suspect]
     Indication: MULTIPLE MYELOMA
     Dosage: 10 MG, 1 IN 1 D, PO
     Route: 048
     Dates: start: 20100603
  16. FLONASE [Concomitant]
  17. SIMVASTATIN [Concomitant]
  18. POTASSIUM CHLORIDE [Concomitant]
  19. MICARDIS [Concomitant]
  20. REMICADE [Concomitant]

REACTIONS (6)
  - DECREASED APPETITE [None]
  - BLOOD GLUCOSE INCREASED [None]
  - FATIGUE [None]
  - TRANSIENT ISCHAEMIC ATTACK [None]
  - FALL [None]
  - ASTHENIA [None]
